FAERS Safety Report 25230696 (Version 2)
Quarter: 2025Q2

REPORT INFORMATION
  Report Type: Spontaneous
  Country: US (occurrence: US)
  Receive Date: 20250423
  Receipt Date: 20250510
  Transmission Date: 20250716
  Serious: No
  Sender: SANOFI AVENTIS
  Company Number: US-SA-2025SA114897

PATIENT
  Age: 75 Year
  Sex: Female

DRUGS (1)
  1. DUPIXENT [Suspect]
     Active Substance: DUPILUMAB
     Indication: Eczema
     Dosage: 300 MG, QOW
     Route: 058
     Dates: start: 20230808

REACTIONS (7)
  - Dry skin [Recovering/Resolving]
  - Scab [Recovered/Resolved]
  - Paranasal sinus hypersecretion [Unknown]
  - Condition aggravated [Unknown]
  - Lacrimation increased [Unknown]
  - Dry eye [Unknown]
  - Rash [Recovered/Resolved]

NARRATIVE: CASE EVENT DATE: 20250301
